FAERS Safety Report 8803423 (Version 2)
Quarter: 2013Q2

REPORT INFORMATION
  Report Type: Spontaneous
  Country: US (occurrence: US)
  Receive Date: 20120924
  Receipt Date: 20130522
  Transmission Date: 20140414
  Serious: Yes (Death)
  Sender: FDA-Public Use
  Company Number: US-ROCHE-1104241

PATIENT
  Sex: Male

DRUGS (4)
  1. AVASTIN [Suspect]
     Indication: LUNG NEOPLASM MALIGNANT
     Route: 065
  2. AVASTIN [Suspect]
     Indication: BONE CANCER
  3. AVASTIN [Suspect]
     Indication: BONE CANCER
  4. HERCEPTIN [Suspect]
     Indication: PRODUCT USED FOR UNKNOWN INDICATION
     Route: 065

REACTIONS (2)
  - Death [Fatal]
  - Contusion [Unknown]
